FAERS Safety Report 7850787-0 (Version None)
Quarter: 2011Q4

REPORT INFORMATION
  Report Type: 
  Country: None (occurrence: None)
  Receive Date: 20111026
  Receipt Date: 20111021
  Transmission Date: 20120403
  Serious: Yes (Hospitalization)
  Sender: FDA-Public Use
  Company Number: DE-SANOFI-AVENTIS-2011SA069986

PATIENT
  Age: 41 Year
  Sex: Female
  Weight: 82 kg

DRUGS (11)
  1. NEULASTA [Suspect]
     Indication: CHEMOTHERAPY
     Route: 058
     Dates: start: 20110809, end: 20110809
  2. TAVEGIL /GFR/ [Concomitant]
     Dates: start: 20110808, end: 20110808
  3. CIMETIDINE [Concomitant]
     Dates: start: 20110808, end: 20110808
  4. DOCETAXEL [Suspect]
     Route: 041
  5. EPIRUBICIN [Concomitant]
  6. EMEND [Concomitant]
  7. DOCETAXEL [Suspect]
     Indication: BREAST CANCER
     Route: 041
     Dates: start: 20110808, end: 20110808
  8. CYCLOPHOSPHAMIDE [Concomitant]
  9. DEXAMETHASONE [Concomitant]
  10. GRANISETRON [Concomitant]
     Dates: start: 20110518, end: 20110518
  11. METOCLOPRAMIDE [Concomitant]
     Dates: start: 20110707

REACTIONS (3)
  - INTERVERTEBRAL DISC PROTRUSION [None]
  - BONE PAIN [None]
  - HAEMOGLOBIN DECREASED [None]
